FAERS Safety Report 9746001 (Version 1)
Quarter: 2013Q4

REPORT INFORMATION
  Report Type: Spontaneous
  Country: FR (occurrence: FR)
  Receive Date: 20131211
  Receipt Date: 20131211
  Transmission Date: 20140711
  Serious: Yes (Hospitalization)
  Sender: FDA-Public Use
  Company Number: FR-ASTRAZENECA-2013SE89405

PATIENT
  Age: 26885 Day
  Sex: Male

DRUGS (17)
  1. INEXIUM [Suspect]
     Route: 048
     Dates: start: 20130907
  2. CRESTOR [Suspect]
     Indication: HYPERLIPIDAEMIA
     Route: 048
     Dates: start: 20130907
  3. BRILIQUE [Suspect]
     Route: 048
     Dates: start: 20130907
  4. PIPERACILLINE TAZOBACTAM PANPHARMA [Suspect]
     Indication: PNEUMONIA
     Route: 042
     Dates: start: 20130907, end: 20130920
  5. DEPAKOTE [Suspect]
     Route: 048
     Dates: start: 20130907
  6. KARDEGIC [Suspect]
     Indication: MYOCARDIAL INFARCTION
     Route: 048
     Dates: start: 20130907
  7. RISPERDAL [Suspect]
     Route: 048
     Dates: end: 20130907
  8. MIANSERINE [Suspect]
     Route: 048
     Dates: end: 20130907
  9. LOXAPAC [Suspect]
     Dosage: 25 DROPS ON DEMAND
     Route: 048
     Dates: end: 20130907
  10. TERCIAN [Suspect]
     Route: 048
     Dates: end: 20130907
  11. TERCIAN [Suspect]
     Route: 048
     Dates: start: 20130909, end: 20130911
  12. TERCIAN [Suspect]
     Dosage: 2 DROPS AT NIGHT
     Route: 048
  13. SERESTA [Concomitant]
  14. MECIR [Concomitant]
     Dosage: 0.4 MG SR QD
  15. VANCOMYCIN [Concomitant]
     Indication: LUNG DISORDER
     Dates: start: 20130907
  16. AMIKLIN [Concomitant]
     Indication: LUNG DISORDER
     Dates: start: 20130907
  17. PERINDOPRIL [Concomitant]
     Dates: start: 20130907

REACTIONS (1)
  - Atrioventricular block complete [Recovered/Resolved]
